FAERS Safety Report 8996569 (Version 1)
Quarter: 2013Q1

REPORT INFORMATION
  Report Type: Spontaneous
  Country: US (occurrence: US)
  Receive Date: 20130104
  Receipt Date: 20130104
  Transmission Date: 20140127
  Serious: No
  Sender: FDA-Public Use
  Company Number: US-PFIZER INC-2013002502

PATIENT
  Age: 29 Year
  Sex: Male
  Weight: 64.85 kg

DRUGS (2)
  1. LYRICA [Suspect]
     Indication: NEURALGIA
     Dosage: 75 MG, UNK
     Route: 048
     Dates: start: 20121210, end: 201212
  2. LYRICA [Suspect]
     Dosage: 150 MG, UNK
     Route: 048
     Dates: start: 20121215, end: 20121230

REACTIONS (1)
  - Insomnia [Not Recovered/Not Resolved]
